FAERS Safety Report 14152271 (Version 1)
Quarter: 2017Q4

REPORT INFORMATION
  Report Type: Report from Study
  Country: US (occurrence: US)
  Receive Date: 20171102
  Receipt Date: 20171102
  Transmission Date: 20180321
  Serious: No
  Sender: FDA-Public Use
  Company Number: US-ASTRAZENECA-2017SE95039

PATIENT
  Age: 66 Year
  Sex: Female
  Weight: 116.6 kg

DRUGS (15)
  1. LYNPARZA [Suspect]
     Active Substance: OLAPARIB
     Indication: OVARIAN CANCER
     Route: 048
     Dates: start: 201708
  2. LOPRESSOR [Concomitant]
     Active Substance: METOPROLOL TARTRATE
     Route: 048
  3. LYNPARZA [Suspect]
     Active Substance: OLAPARIB
     Indication: OVARIAN CANCER
     Route: 048
     Dates: start: 20170914
  4. LYNPARZA [Suspect]
     Active Substance: OLAPARIB
     Indication: OVARIAN CANCER
     Route: 048
  5. TYLENOL [Concomitant]
     Active Substance: ACETAMINOPHEN
     Indication: PAIN
     Dosage: 500.0MG EVERY 4 - 6 HOURS
     Route: 048
  6. MOBIC [Concomitant]
     Active Substance: MELOXICAM
     Indication: ARTHRITIS
     Route: 048
  7. LYNPARZA [Suspect]
     Active Substance: OLAPARIB
     Indication: OVARIAN CANCER
     Route: 048
  8. LYNPARZA [Suspect]
     Active Substance: OLAPARIB
     Indication: OVARIAN CANCER
     Route: 048
     Dates: start: 201706
  9. LYNPARZA [Suspect]
     Active Substance: OLAPARIB
     Indication: OVARIAN CANCER
     Route: 048
     Dates: start: 20170918
  10. AMBIEN [Concomitant]
     Active Substance: ZOLPIDEM TARTRATE
     Indication: SLEEP DISORDER
     Dosage: TAKE ONE TABLET (10 MG TOTAL) BY MOUTH NIGHTLY AS NEEDED FOR SLEEP
     Route: 048
  11. LYNPARZA [Suspect]
     Active Substance: OLAPARIB
     Indication: OVARIAN CANCER
     Route: 048
     Dates: start: 201709
  12. MOBIC [Concomitant]
     Active Substance: MELOXICAM
     Indication: INFLAMMATION
     Route: 048
  13. FLEXERIL [Concomitant]
     Active Substance: CYCLOBENZAPRINE HYDROCHLORIDE
     Route: 048
  14. TAXOL [Suspect]
     Active Substance: PACLITAXEL
     Route: 065
     Dates: start: 201511
  15. MOBIC [Concomitant]
     Active Substance: MELOXICAM
     Indication: NEURALGIA
     Route: 048

REACTIONS (18)
  - Dyspnoea [Unknown]
  - Neuralgia [Unknown]
  - Retching [Unknown]
  - Neutropenia [Unknown]
  - Back pain [Unknown]
  - Vomiting [Unknown]
  - Hypertension [Unknown]
  - Inflammation [Unknown]
  - Nausea [Unknown]
  - Peripheral swelling [Unknown]
  - Drug intolerance [Unknown]
  - Arthritis [Unknown]
  - Circumstance or information capable of leading to medication error [Unknown]
  - Malaise [Unknown]
  - Intentional product misuse [Unknown]
  - Product odour abnormal [Unknown]
  - Drug dose omission [Unknown]
  - Therapeutic response unexpected [Unknown]

NARRATIVE: CASE EVENT DATE: 2017
